FAERS Safety Report 7628835-2 (Version None)
Quarter: 2011Q3

REPORT INFORMATION
  Report Type: 
  Country: None (occurrence: None)
  Receive Date: 20110722
  Receipt Date: 20110707
  Transmission Date: 20111222
  Serious: Yes (Death, Hospitalization, Other)
  Sender: FDA-Public Use
  Company Number: NO-BAYER-2011-058639

PATIENT
  Age: 58 Year
  Sex: Female

DRUGS (7)
  1. INSULIN [Suspect]
  2. CITALOPRAM HYDROBROMIDE [Interacting]
  3. ASPIRIN [Suspect]
  4. BENDROFLUMETHIAZIDE [Suspect]
  5. AMITRIPTYLINE HCL [Interacting]
     Dosage: 25 MG, 2X PER DAY
  6. METFORMIN HCL [Suspect]
  7. SIMVASTATIN [Suspect]
     Dosage: 20 MG, UNK

REACTIONS (4)
  - SEROTONIN SYNDROME [None]
  - DISSEMINATED INTRAVASCULAR COAGULATION [None]
  - RHABDOMYOLYSIS [None]
  - MULTI-ORGAN FAILURE [None]
